FAERS Safety Report 19961334 (Version 1)
Quarter: 2021Q4

REPORT INFORMATION
  Report Type: Spontaneous
  Country: US (occurrence: US)
  Receive Date: 20211017
  Receipt Date: 20211017
  Transmission Date: 20220303
  Serious: No
  Sender: FDA-Public Use
  Company Number: US-SANOFI-00807210

PATIENT
  Age: 83 Year
  Sex: Female
  Weight: 97.51 kg

DRUGS (1)
  1. DUPIXENT [Suspect]
     Active Substance: DUPILUMAB
     Indication: Dermatitis atopic
     Dosage: 300 MG, QOW
     Route: 058

REACTIONS (4)
  - Injection site erythema [Unknown]
  - Injection site pain [Unknown]
  - Injection site pruritus [Unknown]
  - Injection site swelling [Unknown]
